FAERS Safety Report 11321956 (Version 1)
Quarter: 2015Q3

REPORT INFORMATION
  Report Type: Report from Study
  Country: US (occurrence: US)
  Receive Date: 20150729
  Receipt Date: 20150729
  Transmission Date: 20151125
  Serious: Yes (Hospitalization, Other)
  Sender: FDA-Public Use
  Company Number: US-TAKEDA-2015MPI004848

PATIENT
  Age: 19 Year
  Sex: Female
  Weight: 64.7 kg

DRUGS (14)
  1. DAUNORUBICIN HYDROCHLORIDE. [Suspect]
     Active Substance: DAUNORUBICIN HYDROCHLORIDE
     Indication: ACUTE MYELOID LEUKAEMIA
     Dosage: 50 MG/M2, UNK
     Route: 042
     Dates: start: 20150416, end: 20150522
  2. ETOPOSIDE. [Suspect]
     Active Substance: ETOPOSIDE
     Indication: ACUTE MYELOID LEUKAEMIA
     Dosage: 100 MG/M2, UNK
     Route: 042
     Dates: start: 20150416
  3. CYTARABINE. [Suspect]
     Active Substance: CYTARABINE
     Indication: ACUTE MYELOID LEUKAEMIA
     Dosage: UNK
     Route: 037
     Dates: start: 20150416
  4. GENTAMICIN. [Suspect]
     Active Substance: GENTAMICIN
     Indication: ACUTE MYELOID LEUKAEMIA
     Route: 065
  5. ETOPOSIDE. [Suspect]
     Active Substance: ETOPOSIDE
     Dosage: 150 MG/M2, UNK
     Route: 042
     Dates: start: 20150618, end: 20150622
  6. VELCADE [Suspect]
     Active Substance: BORTEZOMIB
     Dosage: 1.3 MG/M2, UNK
     Route: 042
     Dates: start: 20150618, end: 20150625
  7. CYTARABINE. [Suspect]
     Active Substance: CYTARABINE
     Dosage: 100 MG/M2, BID
     Route: 042
  8. CYTARABINE. [Suspect]
     Active Substance: CYTARABINE
     Dosage: 70 MG, BID
     Route: 037
     Dates: start: 20150618, end: 20150623
  9. VANCOMYCIN [Suspect]
     Active Substance: VANCOMYCIN
     Indication: ACUTE MYELOID LEUKAEMIA
     Route: 065
  10. VELCADE [Suspect]
     Active Substance: BORTEZOMIB
     Indication: ACUTE MYELOID LEUKAEMIA
     Dosage: 1.3 MG/M2, UNK
     Route: 042
     Dates: start: 20150416
  11. CYTARABINE. [Suspect]
     Active Substance: CYTARABINE
     Dosage: 1000 MG/M2, BID
     Route: 042
  12. VANCOMYCIN [Concomitant]
     Active Substance: VANCOMYCIN
  13. MEROPENEM. [Concomitant]
     Active Substance: MEROPENEM
  14. GENTAMICIN. [Concomitant]
     Active Substance: GENTAMICIN

REACTIONS (2)
  - Acute kidney injury [Not Recovered/Not Resolved]
  - Colitis [Not Recovered/Not Resolved]

NARRATIVE: CASE EVENT DATE: 20150704
